FAERS Safety Report 21196043 (Version 1)
Quarter: 2022Q3

REPORT INFORMATION
  Report Type: Spontaneous
  Country: US (occurrence: None)
  Receive Date: 20220810
  Receipt Date: 20220810
  Transmission Date: 20221027
  Serious: Yes (Other)
  Sender: FDA-Public Use
  Company Number: None

PATIENT
  Age: 4 Year
  Sex: Female
  Weight: 15.5 kg

DRUGS (12)
  1. PURIXAN [Suspect]
     Active Substance: MERCAPTOPURINE
     Indication: Acute lymphocytic leukaemia
     Dosage: FREQUENCY : DAILY;?
     Route: 048
     Dates: start: 20220225
  2. OLANZAPINE [Concomitant]
     Active Substance: OLANZAPINE
  3. LACTULOSE 10 GM/15 ML [Concomitant]
  4. FLUCONAZOLE [Concomitant]
     Active Substance: FLUCONAZOLE
  5. XATMEP 2.5 MG/ML [Concomitant]
  6. LIDOCAINE\PRILOCAINE [Concomitant]
     Active Substance: LIDOCAINE\PRILOCAINE
  7. BACTRIM 400-80 MG [Concomitant]
  8. METRONIDAZOLE 0.75% TOPICAL GEL [Concomitant]
  9. MUPIROCIN 2% TOPICAL OINT [Concomitant]
  10. KETOCONAZOLE [Concomitant]
     Active Substance: KETOCONAZOLE
  11. GABAPENTIN 250 MG/5 ML [Concomitant]
  12. HYDROCORTISONE 5 MG [Concomitant]

REACTIONS (2)
  - Full blood count decreased [None]
  - Therapy interrupted [None]

NARRATIVE: CASE EVENT DATE: 20220707
